FAERS Safety Report 4740538-0 (Version None)
Quarter: 2005Q3

REPORT INFORMATION
  Report Type: 
  Country: None (occurrence: None)
  Receive Date: 20050801
  Receipt Date: 20040930
  Transmission Date: 20060218
  Serious: Yes (Other)
  Sender: FDA-Public Use
  Company Number: 208416

PATIENT
  Age: 62 Year
  Sex: Male
  Weight: 84.4 kg

DRUGS (4)
  1. RITUXAN [Suspect]
     Indication: LYMPHOPLASMACYTOID LYMPHOMA/IMMUNOCYTOMA
     Dosage: 750 MG, INTRAVENOUS
     Route: 042
     Dates: start: 20030519, end: 20030519
  2. BENADRYL [Concomitant]
  3. ACETAMINOPHEN [Concomitant]
  4. ZANTAC [Concomitant]

REACTIONS (4)
  - CHEST DISCOMFORT [None]
  - CHILLS [None]
  - DYSPNOEA [None]
  - FLUSHING [None]
